FAERS Safety Report 10540418 (Version 1)
Quarter: 2014Q4

REPORT INFORMATION
  Report Type: Spontaneous
  Country: NO (occurrence: NO)
  Receive Date: 20141024
  Receipt Date: 20141024
  Transmission Date: 20150529
  Serious: Yes (Other)
  Sender: FDA-Public Use
  Company Number: NO-AMGEN-NORSP2014081948

PATIENT
  Age: 59 Year
  Sex: Male

DRUGS (6)
  1. RECTOGESIC                         /00003201/ [Concomitant]
     Dosage: UNK UNK, AS NECESSARY
  2. ZOFRAN                             /00955301/ [Concomitant]
     Active Substance: ONDANSETRON HYDROCHLORIDE
     Dosage: 8 MG, AS NECESSARY
  3. EMEND [Concomitant]
     Active Substance: APREPITANT
     Dosage: 125 MG FIRST DAY OF CANCER COURSE, 80 MG DAY 2 AND 3
  4. IMODIUM [Concomitant]
     Active Substance: LOPERAMIDE HYDROCHLORIDE
     Dosage: 2 MG, AS NECESSARY
  5. VECTIBIX [Suspect]
     Active Substance: PANITUMUMAB
     Indication: COLON CANCER
     Dosage: 550 MG, UNK
     Route: 065
     Dates: start: 201402
  6. BETNOVAT MED CHINOFORM [Concomitant]
     Dosage: UNK UNK, AS NECESSARY

REACTIONS (1)
  - Iridocyclitis [Recovering/Resolving]

NARRATIVE: CASE EVENT DATE: 20140725
